FAERS Safety Report 6639392-1 (Version None)
Quarter: 2010Q1

REPORT INFORMATION
  Report Type: 
  Country: None (occurrence: None)
  Receive Date: 20100318
  Receipt Date: 20100310
  Transmission Date: 20100710
  Serious: Yes (Hospitalization)
  Sender: FDA-Public Use
  Company Number: TR-BIOGENIDEC-2010BI005265

PATIENT
  Age: 11 Year
  Sex: Female

DRUGS (2)
  1. AVONEX [Suspect]
     Indication: OPTIC NEURITIS
     Route: 030
     Dates: start: 20061129
  2. AVONEX [Suspect]
     Route: 030
     Dates: start: 20061214, end: 20070115

REACTIONS (3)
  - POSTICTAL PARALYSIS [None]
  - PYREXIA [None]
  - REVERSIBLE POSTERIOR LEUKOENCEPHALOPATHY SYNDROME [None]
